FAERS Safety Report 7885329-7 (Version None)
Quarter: 2011Q4

REPORT INFORMATION
  Report Type: 
  Country: None (occurrence: None)
  Receive Date: 20111102
  Receipt Date: 20111027
  Transmission Date: 20120403
  Serious: Yes (Hospitalization, Other)
  Sender: FDA-Public Use
  Company Number: US-SANOFI-AVENTIS-2011SA071039

PATIENT
  Age: 82 Year
  Sex: Male

DRUGS (1)
  1. PLAVIX [Suspect]
     Dates: start: 19900101

REACTIONS (5)
  - PLATELET COUNT DECREASED [None]
  - CORONARY ARTERY OCCLUSION [None]
  - CROHN'S DISEASE [None]
  - CONTUSION [None]
  - PURPURA [None]
